FAERS Safety Report 11007391 (Version 2)
Quarter: 2015Q2

REPORT INFORMATION
  Report Type: Spontaneous
  Country: US (occurrence: US)
  Receive Date: 20150409
  Receipt Date: 20150525
  Transmission Date: 20150821
  Serious: Yes (Other)
  Sender: FDA-Public Use
  Company Number: US-JNJFOC-20130706329

PATIENT
  Age: 2 Decade
  Sex: Female

DRUGS (2)
  1. REMICADE [Suspect]
     Active Substance: INFLIXIMAB
     Indication: UVEITIS
     Dosage: 1000 MG IN 400 ML
     Route: 042
  2. REMICADE [Suspect]
     Active Substance: INFLIXIMAB
     Indication: UVEITIS
     Route: 042
     Dates: start: 2012, end: 2012

REACTIONS (3)
  - Infusion related reaction [Unknown]
  - Anaphylactic reaction [Unknown]
  - Product use issue [Unknown]

NARRATIVE: CASE EVENT DATE: 2012
